FAERS Safety Report 6228437-9 (Version None)
Quarter: 2009Q2

REPORT INFORMATION
  Report Type: 
  Country: None (occurrence: None)
  Receive Date: 20090612
  Receipt Date: 20090603
  Transmission Date: 20091009
  Serious: Yes (Hospitalization)
  Sender: FDA-Public Use
  Company Number: JP-ELI_LILLY_AND_COMPANY-JP200904003281

PATIENT
  Sex: Female

DRUGS (2)
  1. EVISTA [Suspect]
     Route: 048
  2. ONEALFA [Concomitant]
     Route: 048

REACTIONS (1)
  - CEREBRAL INFARCTION [None]
